FAERS Safety Report 9705412 (Version 1)
Quarter: 2013Q4

REPORT INFORMATION
  Report Type: Spontaneous
  Country: AT (occurrence: AT)
  Receive Date: 20131122
  Receipt Date: 20131122
  Transmission Date: 20140711
  Serious: Yes (Other)
  Sender: FDA-Public Use
  Company Number: AT-SA-2013SA118019

PATIENT
  Age: 80 Year
  Sex: Male

DRUGS (1)
  1. TRENTAL [Suspect]
     Indication: TINNITUS
     Dosage: DOSE: 1-1-0
     Route: 048

REACTIONS (1)
  - Oropharyngeal blistering [Recovered/Resolved]
